FAERS Safety Report 7415853-2 (Version None)
Quarter: 2011Q2

REPORT INFORMATION
  Report Type: 
  Country: None (occurrence: None)
  Receive Date: 20110414
  Receipt Date: 20110317
  Transmission Date: 20111010
  Serious: No
  Sender: FDA-Public Use
  Company Number: US-B.I. PHARMACEUTICALS,INC./RIDGEFIELD-2011-BP-08522BP

PATIENT
  Sex: Female

DRUGS (9)
  1. XALATAN [Concomitant]
     Indication: GLAUCOMA
  2. ASPIRIN [Concomitant]
     Indication: PROPHYLAXIS
  3. PRADAXA [Suspect]
     Indication: ATRIAL FIBRILLATION
     Dosage: 300 MG
     Route: 048
     Dates: start: 20110101
  4. SPIRIVA [Concomitant]
     Dates: start: 20090101
  5. LIPITOR [Concomitant]
     Indication: BLOOD CHOLESTEROL INCREASED
  6. SYNTHROID [Concomitant]
     Indication: HYPOTHYROIDISM
  7. IRON [Concomitant]
     Indication: ANAEMIA
  8. ATENOLOL [Concomitant]
     Indication: HYPERTENSION
     Dates: start: 20100101
  9. PRIMIN [Concomitant]
     Indication: PROPHYLAXIS

REACTIONS (3)
  - BACK PAIN [None]
  - DIARRHOEA [None]
  - ABDOMINAL DISCOMFORT [None]
